FAERS Safety Report 4360017-2 (Version None)
Quarter: 2004Q2

REPORT INFORMATION
  Report Type: 
  Country: None (occurrence: None)
  Receive Date: 20040513
  Receipt Date: 20040507
  Transmission Date: 20050107
  Serious: Yes (Hospitalization)
  Sender: FDA-Public Use
  Company Number: 2004210716US

PATIENT

DRUGS (2)
  1. CELEBREX [Suspect]
     Indication: OEDEMA
  2. BEXTRA [Suspect]

REACTIONS (1)
  - PANCREATITIS [None]
